FAERS Safety Report 8506194-0 (Version None)
Quarter: 2012Q3

REPORT INFORMATION
  Report Type: 
  Country: None (occurrence: None)
  Receive Date: 20120712
  Receipt Date: 20120703
  Transmission Date: 20120928
  Serious: Yes (Other)
  Sender: FDA-Public Use
  Company Number: US-ASTRAZENECA-2010SE12425

PATIENT
  Age: 67 Year
  Sex: Female

DRUGS (3)
  1. MOBIC [Concomitant]
  2. CELEBREX [Concomitant]
  3. NEXIUM [Suspect]
     Route: 048

REACTIONS (9)
  - BREAST CANCER FEMALE [None]
  - BACK INJURY [None]
  - MYOCARDIAL INFARCTION [None]
  - FIBROMYALGIA [None]
  - CROUP INFECTIOUS [None]
  - SKIN CANCER [None]
  - DRUG HYPERSENSITIVITY [None]
  - CIRCULATORY COLLAPSE [None]
  - EAR DISORDER [None]
